FAERS Safety Report 8772722 (Version 3)
Quarter: 2013Q4

REPORT INFORMATION
  Report Type: Report from Study
  Country: JP (occurrence: JP)
  Receive Date: 20120905
  Receipt Date: 20131105
  Transmission Date: 20140711
  Serious: Yes (Hospitalization)
  Sender: FDA-Public Use
  Company Number: JP-009507513-1209JPN000332

PATIENT
  Age: 64 Year
  Sex: Male
  Weight: 70 kg

DRUGS (5)
  1. PEGINTRON [Suspect]
     Indication: HEPATITIS C
     Dosage: 1.4 MICROGRAM PER KILOGRAM, UNK
     Route: 058
     Dates: start: 20120807, end: 20120807
  2. REBETOL [Suspect]
     Indication: HEPATITIS C
     Dosage: 800 MG/DAY
     Route: 048
     Dates: start: 20120807, end: 20120810
  3. TELAVIC [Suspect]
     Indication: HEPATITIS C
     Dosage: 2250 MG, UNK
     Route: 048
     Dates: start: 20120807, end: 20120810
  4. TENORMIN [Concomitant]
     Indication: HYPERTENSION
     Dosage: 25 MG, UNK
     Route: 048
  5. LOXONIN [Concomitant]
     Indication: HEPATITIS C
     Dosage: UNK, PRN(IT/DAY)
     Dates: start: 20120809, end: 20120809

REACTIONS (1)
  - Renal disorder [Recovering/Resolving]
